FAERS Safety Report 11769881 (Version 1)
Quarter: 2015Q4

REPORT INFORMATION
  Report Type: Spontaneous
  Country: US (occurrence: US)
  Receive Date: 20151123
  Receipt Date: 20151123
  Transmission Date: 20160304
  Serious: Yes (Other)
  Sender: FDA-Public Use
  Company Number: US-SUNOVION-2015SUN000977

PATIENT
  Age: 88 Year
  Sex: Female

DRUGS (1)
  1. LUNESTA [Suspect]
     Active Substance: ESZOPICLONE
     Indication: PAIN
     Dosage: UNK MG, UNK
     Route: 048

REACTIONS (4)
  - Off label use [Unknown]
  - Bile duct obstruction [Unknown]
  - Insomnia [Unknown]
  - Pain [Unknown]
